FAERS Safety Report 5515271-8 (Version None)
Quarter: 2007Q4

REPORT INFORMATION
  Report Type: 
  Country: None (occurrence: None)
  Receive Date: 20071113
  Receipt Date: 20071113
  Transmission Date: 20080405
  Serious: Yes (Hospitalization)
  Sender: FDA-Public Use
  Company Number: US-GENENTECH-247492

PATIENT
  Sex: Male
  Weight: 38.8 kg

DRUGS (1)
  1. SOMATROPIN [Suspect]
     Indication: SILVER-RUSSELL SYNDROME
     Dosage: 3.1 MG, 6/WEEK
     Route: 058
     Dates: start: 19990602

REACTIONS (1)
  - PNEUMONIA [None]
